FAERS Safety Report 8333084-9 (Version None)
Quarter: 2012Q2

REPORT INFORMATION
  Report Type: 
  Country: None (occurrence: None)
  Receive Date: 20120503
  Receipt Date: 20120427
  Transmission Date: 20120825
  Serious: Yes (Death, Other)
  Sender: FDA-Public Use
  Company Number: PHHY2012BE013702

PATIENT
  Age: 57 Year
  Sex: Female

DRUGS (4)
  1. NAVELBINE [Concomitant]
     Indication: BREAST CANCER
     Dosage: UNK UKN, UNK
     Route: 042
  2. ZOMETA [Suspect]
     Indication: METASTASES TO BONE
     Dosage: UNK
     Dates: start: 20110801, end: 20120220
  3. XELODA [Concomitant]
     Indication: BREAST CANCER
     Dosage: UNK UKN, UNK
     Route: 065
  4. RADIOTHERAPY [Concomitant]
     Dosage: UNK

REACTIONS (8)
  - FISTULA [None]
  - BONE PAIN [None]
  - ULCER [None]
  - OSTEONECROSIS OF JAW [None]
  - EXPOSED BONE IN JAW [None]
  - BONE LESION [None]
  - RETROPERITONEAL NEOPLASM METASTATIC [None]
  - NEOPLASM MALIGNANT [None]
